FAERS Safety Report 10575326 (Version 1)
Quarter: 2014Q4

REPORT INFORMATION
  Report Type: Spontaneous
  Country: US (occurrence: None)
  Receive Date: 20141107
  Receipt Date: 20141107
  Transmission Date: 20150529
  Serious: Yes (Hospitalization)
  Sender: FDA-Public Use
  Company Number: 2607351

PATIENT
  Age: 69 Year
  Sex: Male

DRUGS (1)
  1. PHENYTOIN. [Suspect]
     Active Substance: PHENYTOIN
     Indication: PRODUCT USED FOR UNKNOWN INDICATION

REACTIONS (7)
  - Hepatic enzyme increased [None]
  - Anticonvulsant drug level increased [None]
  - Mental status changes [None]
  - Gait disturbance [None]
  - Pyrexia [None]
  - Somnolence [None]
  - Toxicity to various agents [None]
